FAERS Safety Report 5110869-3 (Version None)
Quarter: 2006Q3

REPORT INFORMATION
  Report Type: 
  Country: None (occurrence: None)
  Receive Date: 20060919
  Receipt Date: 20060905
  Transmission Date: 20061208
  Serious: Yes (Life-Threatening)
  Sender: FDA-Public Use
  Company Number: 2006-202

PATIENT
  Age: 88 Year
  Sex: Female
  Weight: 75 kg

DRUGS (12)
  1. CITALOPRAM HYDROBROMIDE [Suspect]
  2. HEPARIN [Suspect]
  3. CALCICHEW [Concomitant]
  4. FERROUS SULFATE TAB [Concomitant]
  5. FUROSEMIDE [Concomitant]
  6. MOVICOL [Concomitant]
  7. METOLAZONE [Concomitant]
  8. NEORECORMON [Concomitant]
  9. PROCHLORPERAZINE [Concomitant]
  10. SPIRONOLACTONE [Concomitant]
  11. ZOPICLONE [Concomitant]
  12. ISOTARD XL [Concomitant]

REACTIONS (2)
  - GASTROINTESTINAL HAEMORRHAGE [None]
  - OESOPHAGITIS [None]
